FAERS Safety Report 15727763 (Version 4)
Quarter: 2019Q2

REPORT INFORMATION
  Report Type: Spontaneous
  Country: US (occurrence: US)
  Receive Date: 20181217
  Receipt Date: 20190627
  Transmission Date: 20190711
  Serious: Yes (Other)
  Sender: FDA-Public Use
  Company Number: US-PFIZER INC-2018513145

PATIENT
  Age: 58 Year
  Sex: Male

DRUGS (2)
  1. SUTENT [Suspect]
     Active Substance: SUNITINIB MALATE
     Indication: RENAL CANCER
     Dosage: 50 MG, CYCLIC (DAILY ON DAYS 1-28 OUT OF 42 DAYS)
     Route: 048
     Dates: start: 201812
  2. CABOZANTINIB [Suspect]
     Active Substance: CABOZANTINIB
     Indication: METASTATIC RENAL CELL CARCINOMA
     Dosage: 60 MG, DAILY
     Route: 048
     Dates: start: 201903

REACTIONS (10)
  - Haematemesis [Recovered/Resolved]
  - Skin exfoliation [Unknown]
  - Weight increased [Unknown]
  - Vomiting [Unknown]
  - Muscle strain [Unknown]
  - Ageusia [Unknown]
  - Constipation [Unknown]
  - Genital rash [Recovered/Resolved]
  - Fatigue [Not Recovered/Not Resolved]
  - Bone pain [Recovering/Resolving]

NARRATIVE: CASE EVENT DATE: 2018
